APPROVED DRUG PRODUCT: SILVADENE
Active Ingredient: SILVER SULFADIAZINE
Strength: 1%
Dosage Form/Route: CREAM;TOPICAL
Application: N017381 | Product #001 | TE Code: AB
Applicant: KING PHARMACEUTICALS LLC
Approved: Approved Prior to Jan 1, 1982 | RLD: Yes | RS: Yes | Type: RX